FAERS Safety Report 10009733 (Version 1)
Quarter: 2014Q1

REPORT INFORMATION
  Report Type: Spontaneous
  Country: US (occurrence: US)
  Receive Date: 20140312
  Receipt Date: 20140312
  Transmission Date: 20141002
  Serious: Yes (Other)
  Sender: FDA-Public Use
  Company Number: US-INCYTE CORPORATION-2012IN002588

PATIENT
  Sex: 0

DRUGS (1)
  1. JAKAFI [Suspect]
     Dosage: 20 MG, BID
     Route: 048
     Dates: start: 20121006

REACTIONS (1)
  - Haemoglobin decreased [Unknown]
